FAERS Safety Report 5343456-2 (Version None)
Quarter: 2007Q2

REPORT INFORMATION
  Report Type: 
  Country: None (occurrence: None)
  Receive Date: 20070531
  Receipt Date: 20060927
  Transmission Date: 20071010
  Serious: Yes (Other)
  Sender: FDA-Public Use
  Company Number: 2006VX001499

PATIENT
  Age: 41 Year
  Sex: Female
  Weight: 65 kg

DRUGS (4)
  1. FLURAZEPAM HCL [Suspect]
     Dosage: ; PO
     Route: 048
  2. IBUPROFEN [Suspect]
     Dosage: ; PO
     Route: 048
  3. TERAZEPAM (TERAZEPAM) (50 MG) [Suspect]
     Dosage: 500 MG; ;PO;
     Route: 048
  4. ZOPLICONE (ZOPICLONE) 7.5 MG [Suspect]
     Dosage: ;PO
     Route: 048

REACTIONS (2)
  - INCORRECT DOSE ADMINISTERED [None]
  - SUICIDE ATTEMPT [None]
